FAERS Safety Report 17498166 (Version 1)
Quarter: 2020Q1

REPORT INFORMATION
  Report Type: Spontaneous
  Country: US (occurrence: US)
  Receive Date: 20200304
  Receipt Date: 20200304
  Transmission Date: 20200409
  Serious: No
  Sender: FDA-Public Use
  Company Number: US-BAUSCH-BL-2020-004941

PATIENT
  Sex: Female

DRUGS (4)
  1. TRETINOIN. [Suspect]
     Active Substance: TRETINOIN
     Indication: PRODUCT USED FOR UNKNOWN INDICATION
     Dosage: USED IN THE PAST (EXACT DATES UNSPECIFIED)
     Route: 061
  2. TRETINOIN. [Suspect]
     Active Substance: TRETINOIN
     Dosage: PURCHASED ANOTHER TUBE
     Route: 061
     Dates: start: 2020, end: 2020
  3. TRETINOIN. [Suspect]
     Active Substance: TRETINOIN
     Dosage: APPLIED PRODUCT AGAIN
     Route: 061
     Dates: start: 2020, end: 2020
  4. TRETINOIN. [Suspect]
     Active Substance: TRETINOIN
     Dosage: STARTED ANOTHER TUBE FEW DAYS LATER AND DISCONTINUED FOR A MONTH
     Route: 061
     Dates: start: 2020, end: 2020

REACTIONS (3)
  - Erythema [Unknown]
  - Product quality issue [Unknown]
  - Skin exfoliation [Unknown]

NARRATIVE: CASE EVENT DATE: 2020
